FAERS Safety Report 6946510-4 (Version None)
Quarter: 2010Q3

REPORT INFORMATION
  Report Type: 
  Country: None (occurrence: None)
  Receive Date: 20100827
  Receipt Date: 20090804
  Transmission Date: 20110219
  Serious: No
  Sender: FDA-Public Use
  Company Number: US-ABBOTT-09P-163-0589207-00

PATIENT
  Sex: Female
  Weight: 60.382 kg

DRUGS (10)
  1. NIASPAN [Suspect]
     Indication: ANEURYSM
     Dates: start: 20090730
  2. NIASPAN [Suspect]
     Indication: PERIPHERAL VASCULAR DISORDER
  3. NIASPAN [Suspect]
     Indication: BLOOD CHOLESTEROL INCREASED
  4. AGRALINE [Concomitant]
     Indication: PLATELET DISORDER
  5. NEXIUM [Concomitant]
     Indication: GASTROOESOPHAGEAL REFLUX DISEASE
  6. LOVAZA [Concomitant]
     Indication: CARDIAC DISORDER
  7. BENICAR [Concomitant]
     Indication: HYPERTENSION
  8. AMLODIPINE [Concomitant]
     Indication: HYPERTENSION
  9. TOPROL-XL [Concomitant]
     Indication: HYPERTENSION
  10. XANAX [Concomitant]
     Indication: INSOMNIA

REACTIONS (2)
  - CHILLS [None]
  - FEELING HOT [None]
